FAERS Safety Report 8668403 (Version 2)
Quarter: 2012Q4

REPORT INFORMATION
  Report Type: 
  Country: US (occurrence: US)
  Receive Date: 20120717
  Receipt Date: 20120828
  Transmission Date: 20130627
  Serious: No
  Sender: FDA-Public Use
  Company Number: US-009507513-0711USA02523

PATIENT

DRUGS (5)
  1. JANUVIA [Suspect]
     Indication: DIABETES MELLITUS
     Dosage: 100 mg, qd
     Route: 048
     Dates: start: 201101
  2. DIOVAN [Concomitant]
  3. PREVACID [Concomitant]
  4. CORTICOSTEROID, TOPICAL NOS [Suspect]
  5. MK-9379 [Concomitant]

REACTIONS (6)
  - Blood glucose increased [Not Recovered/Not Resolved]
  - Dizziness [Not Recovered/Not Resolved]
  - Neck pain [Not Recovered/Not Resolved]
  - Blood glucose increased [Not Recovered/Not Resolved]
  - Rash macular [Not Recovered/Not Resolved]
  - Haemorrhage [Not Recovered/Not Resolved]
